FAERS Safety Report 4846204-5 (Version None)
Quarter: 2005Q4

REPORT INFORMATION
  Report Type: 
  Country: None (occurrence: None)
  Receive Date: 20051202
  Receipt Date: 20051202
  Transmission Date: 20060501
  Serious: Yes (Other)
  Sender: FDA-Public Use
  Company Number: None

PATIENT
  Sex: Male
  Weight: 51.18 kg

DRUGS (4)
  1. FLUOROURACIL [Suspect]
     Indication: GASTROOESOPHAGEAL CANCER
     Dosage: SEE IMAGE
     Dates: start: 20051115, end: 20051122
  2. FLUOROURACIL [Suspect]
     Indication: GASTROOESOPHAGEAL CANCER
     Dosage: SEE IMAGE
     Dates: start: 20051115
  3. CISPLATIN [Suspect]
     Dosage: SEE IMAGE
     Dates: start: 20051115, end: 20051115
  4. EPIRUBICIN [Suspect]
     Dosage: SEE IMAGE
     Dates: start: 20051115, end: 20051115

REACTIONS (2)
  - ANOREXIA [None]
  - WEIGHT DECREASED [None]
